FAERS Safety Report 6627138-2 (Version None)
Quarter: 2010Q1

REPORT INFORMATION
  Report Type: 
  Country: None (occurrence: None)
  Receive Date: 20100311
  Receipt Date: 20091009
  Transmission Date: 20100710
  Serious: No
  Sender: FDA-Public Use
  Company Number: A0811155A

PATIENT
  Age: 67 Year
  Sex: Female

DRUGS (1)
  1. NICOTINE POLACRILEX [Suspect]
     Dates: start: 20091008

REACTIONS (3)
  - ABDOMINAL DISCOMFORT [None]
  - DIZZINESS [None]
  - NAUSEA [None]
